FAERS Safety Report 8134897-9 (Version None)
Quarter: 2012Q1

REPORT INFORMATION
  Report Type: 
  Country: None (occurrence: None)
  Receive Date: 20120214
  Receipt Date: 20120203
  Transmission Date: 20120608
  Serious: Yes (Other)
  Sender: FDA-Public Use
  Company Number: IE-JNJFOC-20101107035

PATIENT
  Sex: Female

DRUGS (20)
  1. REMICADE [Suspect]
     Route: 042
     Dates: start: 20110804
  2. REMICADE [Suspect]
     Dosage: INFUSION DATE 27-JAN-^2011^
     Route: 042
  3. REMICADE [Suspect]
     Route: 042
     Dates: start: 20111104
  4. CALCIUM CARBONATE [Concomitant]
  5. REMICADE [Suspect]
     Route: 042
     Dates: start: 20110622
  6. REMICADE [Suspect]
     Route: 042
     Dates: start: 20100805
  7. REMICADE [Suspect]
     Route: 042
     Dates: start: 20100610
  8. REMICADE [Suspect]
     Route: 042
     Dates: start: 20101126
  9. ELEMENTAL 028 [Concomitant]
  10. REMICADE [Suspect]
     Route: 042
     Dates: start: 20100429
  11. REMICADE [Suspect]
     Route: 042
     Dates: start: 20111219
  12. PRILOSEC [Concomitant]
  13. NOVORAPID [Concomitant]
  14. REMICADE [Suspect]
     Route: 042
     Dates: start: 20110310
  15. PREDNISONE TAB [Concomitant]
  16. REMICADE [Suspect]
     Indication: CROHN'S DISEASE
     Route: 042
     Dates: start: 20100929
  17. REMICADE [Suspect]
     Route: 042
     Dates: start: 20110426
  18. REMICADE [Suspect]
     Route: 042
  19. LANTUS [Concomitant]
  20. REMICADE [Suspect]
     Route: 042
     Dates: start: 20110121

REACTIONS (1)
  - ALOPECIA [None]
